FAERS Safety Report 14692229 (Version 1)
Quarter: 2018Q1

REPORT INFORMATION
  Report Type: Report from Study
  Country: US (occurrence: US)
  Receive Date: 20180329
  Receipt Date: 20180329
  Transmission Date: 20180509
  Serious: Yes (Other)
  Sender: FDA-Public Use
  Company Number: US-ROCHE-2082052

PATIENT
  Age: 7 Year
  Sex: Male
  Weight: 42.81 kg

DRUGS (3)
  1. NUTROPIN AQ [Suspect]
     Active Substance: SOMATROPIN
     Indication: PRADER-WILLI SYNDROME
     Route: 058
     Dates: start: 20070108
  2. ABILIFY [Concomitant]
     Active Substance: ARIPIPRAZOLE
     Dosage: 2 TABS IN AM AND 1 TAB HS
     Route: 048
  3. NUTROPIN AQ [Suspect]
     Active Substance: SOMATROPIN
     Route: 058

REACTIONS (17)
  - High density lipoprotein decreased [Unknown]
  - Respiratory tract infection [Recovered/Resolved]
  - Off label use [Unknown]
  - Platelet count increased [Unknown]
  - Protein total decreased [Unknown]
  - Body height abnormal [Unknown]
  - Blood pressure systolic decreased [Unknown]
  - Blood triglycerides increased [Unknown]
  - Aggression [Unknown]
  - Weight increased [Unknown]
  - Mean platelet volume increased [Unknown]
  - Blood creatinine decreased [Unknown]
  - Intentional product use issue [Unknown]
  - Blood alkaline phosphatase increased [Unknown]
  - Hypotonia [Unknown]
  - Blood glucose decreased [Unknown]
  - Alanine aminotransferase increased [Unknown]

NARRATIVE: CASE EVENT DATE: 2009
